FAERS Safety Report 10095541 (Version 1)
Quarter: 2014Q2

REPORT INFORMATION
  Report Type: Spontaneous
  Country: GB (occurrence: GB)
  Receive Date: 20140422
  Receipt Date: 20140422
  Transmission Date: 20141212
  Serious: Yes (Hospitalization)
  Sender: FDA-Public Use
  Company Number: GB-WATSON-2014-07714

PATIENT
  Age: 57 Year
  Sex: Female

DRUGS (1)
  1. PREDNISOLONE (UNKNOWN) [Suspect]
     Indication: PEMPHIGOID
     Dosage: 50 MG, UNKNOWN
     Route: 048
     Dates: start: 20131120

REACTIONS (1)
  - Psychotic disorder [Recovered/Resolved]
